FAERS Safety Report 5079577-1 (Version None)
Quarter: 2006Q3

REPORT INFORMATION
  Report Type: 
  Country: None (occurrence: None)
  Receive Date: 20060811
  Receipt Date: 20060811
  Transmission Date: 20061208
  Serious: No
  Sender: FDA-Public Use
  Company Number: None

PATIENT
  Age: 47 Year
  Sex: Female
  Weight: 63.5036 kg

DRUGS (5)
  1. THALLIUM [Suspect]
     Indication: CARDIAC DISORDER
     Dates: start: 20060802, end: 20060802
  2. THALLIUM [Suspect]
     Indication: CARDIAC STRESS TEST
     Dates: start: 20060802, end: 20060802
  3. THALLIUM [Suspect]
     Indication: CHEST PAIN
     Dates: start: 20060802, end: 20060802
  4. THALLIUM [Suspect]
     Indication: GENE MUTATION
     Dates: start: 20060802, end: 20060802
  5. THALLIUM [Concomitant]

REACTIONS (2)
  - METAL POISONING [None]
  - SKIN DISCOLOURATION [None]
